FAERS Safety Report 5330077-0 (Version None)
Quarter: 2007Q2

REPORT INFORMATION
  Report Type: 
  Country: None (occurrence: None)
  Receive Date: 20070521
  Receipt Date: 20070511
  Transmission Date: 20071010
  Serious: Yes (Death, Hospitalization)
  Sender: FDA-Public Use
  Company Number: PA-ROCHE-486064

PATIENT
  Age: 68 Year
  Sex: Male
  Weight: 44.2 kg

DRUGS (2)
  1. CAPECITABINE [Suspect]
     Indication: GASTRIC CANCER
     Dosage: DOSE AS PER CLINICAL PROTOCOL. ACTUAL DOSE: 1300 MG. GIVEN FOR 14 DAYS EVERY 3 WEEKS (FROM PM OF DA+
     Route: 048
     Dates: start: 20070207, end: 20070307
  2. CISPLATIN [Suspect]
     Indication: GASTRIC CANCER
     Dosage: DOSE AS PER CLINICAL PROTOCOL. ACTUAL DOSE: 110 MG. GIVEN ON DAY 1 OF 3 WEEK CYCLE. DOSAGE FORM REP+
     Route: 042
     Dates: start: 20070207, end: 20070307

REACTIONS (3)
  - DEATH [None]
  - PNEUMONIA [None]
  - SEPSIS [None]
